FAERS Safety Report 4902854-9 (Version None)
Quarter: 2006Q1

REPORT INFORMATION
  Report Type: 
  Country: None (occurrence: None)
  Receive Date: 20060207
  Receipt Date: 20001207
  Transmission Date: 20060701
  Serious: Yes (Other)
  Sender: FDA-Public Use
  Company Number: UG-2000-BP-02251

PATIENT
  Age: 24 Year
  Sex: Female

DRUGS (1)
  1. VIRAMUNE [Suspect]
     Indication: ACQUIRED IMMUNODEFICIENCY SYNDROME
     Route: 048
     Dates: start: 20001115, end: 20001115

REACTIONS (6)
  - ANAEMIA [None]
  - CHILLS [None]
  - DIZZINESS [None]
  - HEADACHE [None]
  - PROCEDURAL PAIN [None]
  - VAGINAL HAEMORRHAGE [None]
